FAERS Safety Report 4314381-0 (Version None)
Quarter: 2004Q1

REPORT INFORMATION
  Report Type: 
  Country: None (occurrence: None)
  Receive Date: 20040308
  Receipt Date: 20040224
  Transmission Date: 20041129
  Serious: Yes (Other)
  Sender: FDA-Public Use
  Company Number: HQWYE367826FEB04

PATIENT
  Age: 82 Year
  Sex: Male
  Weight: 81.72 kg

DRUGS (9)
  1. PROTONIX [Suspect]
     Indication: GASTROOESOPHAGEAL REFLUX DISEASE
     Dosage: 40 MG 1 X PER 1 DAY, ORAL
     Route: 048
     Dates: start: 20040101, end: 20040219
  2. PROTONIX [Suspect]
     Indication: GASTROOESOPHAGEAL REFLUX DISEASE
     Dosage: 40 MG 1 X PER 1 DAY, ORAL
     Route: 048
     Dates: start: 20040222
  3. COUMADIN [Suspect]
  4. LASIX [Concomitant]
  5. HYTRIN [Concomitant]
  6. PROZAC [Concomitant]
  7. DIGOXIN [Concomitant]
  8. AVAPRO [Concomitant]
  9. PRILOSEC [Concomitant]

REACTIONS (2)
  - DRUG INTERACTION [None]
  - RECTAL HAEMORRHAGE [None]
